FAERS Safety Report 15625475 (Version 1)
Quarter: 2018Q4

REPORT INFORMATION
  Report Type: Spontaneous
  Country: US (occurrence: US)
  Receive Date: 20181116
  Receipt Date: 20181116
  Transmission Date: 20190205
  Serious: No
  Sender: FDA-Public Use
  Company Number: US-ASTRAZENECA-2018SF43226

PATIENT
  Sex: Female
  Weight: 99.8 kg

DRUGS (2)
  1. PREDNISONE. [Concomitant]
     Active Substance: PREDNISONE
     Indication: ILL-DEFINED DISORDER
     Route: 048
     Dates: start: 20181022
  2. SYMBICORT [Suspect]
     Active Substance: BUDESONIDE\FORMOTEROL FUMARATE DIHYDRATE
     Indication: ASTHMA
     Dosage: 160/4.5 MCG, 2 PUFFS, TWICE A DAY
     Route: 055
     Dates: start: 20181019

REACTIONS (5)
  - Eye swelling [Unknown]
  - Ocular hyperaemia [Unknown]
  - Adverse drug reaction [Unknown]
  - Feeling abnormal [Unknown]
  - Dry eye [Unknown]
